FAERS Safety Report 14047160 (Version 1)
Quarter: 2017Q4

REPORT INFORMATION
  Report Type: Spontaneous
  Country: GB (occurrence: GB)
  Receive Date: 20171005
  Receipt Date: 20171005
  Transmission Date: 20180321
  Serious: Yes (Other)
  Sender: FDA-Public Use
  Company Number: GB-TEVA-811618ACC

PATIENT
  Age: 37 Year
  Sex: Female
  Weight: 78.24 kg

DRUGS (3)
  1. DRISTAN DECONGESTANT WITH ANTIHISTAMINE [Concomitant]
  2. GENATOSAN MULTIVITAMINS [Concomitant]
  3. SERTRALINE [Suspect]
     Active Substance: SERTRALINE HYDROCHLORIDE
     Indication: DEPRESSION SUICIDAL
     Dosage: 100 MILLIGRAM DAILY;
     Route: 048
     Dates: start: 20150319

REACTIONS (4)
  - Breast discharge [Recovered/Resolved]
  - Urticaria [Not Recovered/Not Resolved]
  - Dizziness [Not Recovered/Not Resolved]
  - Syncope [Not Recovered/Not Resolved]

NARRATIVE: CASE EVENT DATE: 20161101
